FAERS Safety Report 11689376 (Version 2)
Quarter: 2015Q4

REPORT INFORMATION
  Report Type: Spontaneous
  Country: MX (occurrence: MX)
  Receive Date: 20151102
  Receipt Date: 20151104
  Transmission Date: 20160304
  Serious: Yes (Other)
  Sender: FDA-Public Use
  Company Number: PHHY2015MX141010

PATIENT
  Sex: Female
  Weight: 2.9 kg

DRUGS (3)
  1. FOLIC ACID. [Suspect]
     Active Substance: FOLIC ACID
     Indication: FOETAL EXPOSURE DURING PREGNANCY
     Dosage: 1 DF (DURING THE NIGHT)
     Route: 064
  2. ALEPSAL [Suspect]
     Active Substance: CAFFEINE\PHENOBARBITAL
     Indication: FOETAL EXPOSURE DURING PREGNANCY
     Route: 064
  3. TRILEPTAL [Suspect]
     Active Substance: OXCARBAZEPINE
     Indication: FOETAL EXPOSURE DURING PREGNANCY
     Dosage: 1 DF, BID (1 DF AT MORNING AND 1 DF AT NIGHT)
     Route: 064

REACTIONS (5)
  - Foot deformity [Recovered/Resolved]
  - Premature baby [Unknown]
  - Umbilical cord abnormality [Unknown]
  - Foetal exposure during pregnancy [Unknown]
  - Developmental hip dysplasia [Recovered/Resolved]
